FAERS Safety Report 7366797-6 (Version None)
Quarter: 2011Q1

REPORT INFORMATION
  Report Type: 
  Country: None (occurrence: None)
  Receive Date: 20110322
  Receipt Date: 20110310
  Transmission Date: 20110831
  Serious: Yes (Other)
  Sender: FDA-Public Use
  Company Number: US-ROCHE-765063

PATIENT
  Sex: Male
  Weight: 100 kg

DRUGS (10)
  1. NORVASC [Concomitant]
  2. HUMULIN R [Concomitant]
  3. ISOSORBIDE DINITRATE [Concomitant]
  4. CELLCEPT [Suspect]
     Dosage: START DATE: PRIOR TO NOVEMBER 2008
     Route: 048
  5. SUMAX [Concomitant]
  6. LEVEMIR [Concomitant]
  7. CLONIDINE [Concomitant]
  8. HYDRALAZINE [Concomitant]
  9. HUMALOG [Concomitant]
  10. SYNTHROID [Concomitant]

REACTIONS (1)
  - GASTRIC BYPASS [None]
